FAERS Safety Report 9224528 (Version 1)
Quarter: 2013Q2

REPORT INFORMATION
  Report Type: Spontaneous
  Country: FR (occurrence: FR)
  Receive Date: 20130411
  Receipt Date: 20130411
  Transmission Date: 20140414
  Serious: Yes (Other)
  Sender: FDA-Public Use
  Company Number: FR-JNJFOC-20130402992

PATIENT
  Sex: 0

DRUGS (2)
  1. INTELENCE [Suspect]
     Indication: PRODUCT USED FOR UNKNOWN INDICATION
     Route: 065
     Dates: start: 201303
  2. TRUVADA [Suspect]
     Indication: PRODUCT USED FOR UNKNOWN INDICATION
     Route: 065
     Dates: start: 201303

REACTIONS (4)
  - Agitation [Recovering/Resolving]
  - Dizziness [Recovering/Resolving]
  - Photosensitivity reaction [Recovering/Resolving]
  - Asthenopia [Recovering/Resolving]
